FAERS Safety Report 4804059-9 (Version None)
Quarter: 2005Q4

REPORT INFORMATION
  Report Type: 
  Country: None (occurrence: None)
  Receive Date: 20051018
  Receipt Date: 20051018
  Transmission Date: 20060501
  Serious: No
  Sender: FDA-Public Use
  Company Number: None

PATIENT
  Age: 81 Year
  Sex: Female
  Weight: 60 kg

DRUGS (1)
  1. DAPTOMYCIN [Suspect]
     Indication: ENDOCARDITIS
     Dosage: 400 MG IV Q 48
     Route: 042

REACTIONS (2)
  - BEDRIDDEN [None]
  - BLOOD CREATINE PHOSPHOKINASE INCREASED [None]
